FAERS Safety Report 4431402-5 (Version None)
Quarter: 2004Q3

REPORT INFORMATION
  Report Type: 
  Country: None (occurrence: None)
  Receive Date: 20040824
  Receipt Date: 20030304
  Transmission Date: 20050211
  Serious: Yes (Other)
  Sender: FDA-Public Use
  Company Number: CA-GLAXOSMITHKLINE-A0399039A

PATIENT
  Age: 64 Year
  Sex: Female
  Weight: 77.3 kg

DRUGS (3)
  1. FLOVENT [Suspect]
     Indication: ASTHMA
     Route: 055
     Dates: start: 20030125, end: 20030127
  2. AVAPRO [Concomitant]
     Dosage: 300MG PER DAY
     Dates: start: 20020824
  3. FERROUS GLUCONATE [Concomitant]
     Dates: start: 20021201

REACTIONS (3)
  - CARCINOMA [None]
  - PHARMACEUTICAL PRODUCT COMPLAINT [None]
  - PULMONARY FUNCTION TEST DECREASED [None]
